FAERS Safety Report 8942662 (Version 1)
Quarter: 2012Q4

REPORT INFORMATION
  Report Type: 
  Country: US (occurrence: US)
  Receive Date: 20121204
  Receipt Date: 20121204
  Transmission Date: 20130627
  Serious: Yes (Hospitalization)
  Sender: FDA-Public Use
  Company Number: US-BAYER-2012-124883

PATIENT
  Age: 19 Year
  Sex: Female

DRUGS (6)
  1. YAZ [Suspect]
     Indication: BIRTH CONTROL
  2. YASMIN [Suspect]
  3. PEPCID [Concomitant]
  4. CIPRO [Concomitant]
  5. FLAGYL [Concomitant]
  6. VICODIN [Concomitant]
     Indication: PAIN

REACTIONS (2)
  - Pelvic venous thrombosis [Recovered/Resolved]
  - Deep vein thrombosis [Recovered/Resolved]
